FAERS Safety Report 8391005-7 (Version None)
Quarter: 2012Q2

REPORT INFORMATION
  Report Type: 
  Country: None (occurrence: None)
  Receive Date: 20120529
  Receipt Date: 20120521
  Transmission Date: 20120825
  Serious: Yes (Other)
  Sender: FDA-Public Use
  Company Number: GB-UCBSA-057816

PATIENT
  Sex: Male

DRUGS (2)
  1. ANTIBIOTICS [Concomitant]
     Indication: LOCALISED INFECTION
     Dates: start: 20120101
  2. CIMZIA [Suspect]
     Dosage: 400 MG
     Dates: start: 20120430, end: 20120501

REACTIONS (2)
  - HERPES ZOSTER [None]
  - LOCALISED INFECTION [None]
